FAERS Safety Report 8917245 (Version 2)
Quarter: 2012Q4

REPORT INFORMATION
  Report Type: Report from Study
  Country: JP (occurrence: JP)
  Receive Date: 20121120
  Receipt Date: 20121127
  Transmission Date: 20130627
  Serious: Yes (Hospitalization)
  Sender: FDA-Public Use
  Company Number: JP-VERTEX PHARMACEUTICAL INC.-AE-2012-009362

PATIENT
  Age: 62 Year
  Sex: Female

DRUGS (21)
  1. VX-950 (TELAPREVIR) [Suspect]
     Indication: CHRONIC HEPATITIS C
     Dosage: 2250 mg, qd
     Route: 048
     Dates: start: 20120313, end: 20120315
  2. VX-950 (TELAPREVIR) [Suspect]
     Dosage: 1500 mg, qd
     Route: 048
     Dates: start: 20120316, end: 20120531
  3. RIBAVIRIN [Suspect]
     Indication: CHRONIC HEPATITIS C
     Dosage: 400 mg, qd
     Route: 048
     Dates: start: 20120313, end: 20120320
  4. RIBAVIRIN [Suspect]
     Dosage: 200 mg, qd
     Route: 048
     Dates: start: 20120321, end: 20120509
  5. PEGINTRON                          /01543001/ [Suspect]
     Indication: CHRONIC HEPATITIS C
     Dosage: 1.5 ?g/kg, qw
     Route: 058
     Dates: start: 20120313, end: 20120531
  6. JUVELA N [Concomitant]
     Dosage: 400 mg, qd
     Route: 048
  7. GASMOTIN [Concomitant]
     Dosage: 10 mg, qd
     Route: 048
  8. BLOPRESS [Concomitant]
     Dosage: 8 mg, qd
     Route: 048
  9. NADIC [Concomitant]
     Dosage: 15 mg, qd
     Route: 048
  10. ALDACTONE A [Concomitant]
     Dosage: 25 mg, qd
     Route: 048
  11. METALCAPTASE                       /00062501/ [Concomitant]
     Dosage: 200 mg, qd
     Route: 048
  12. GASTER [Concomitant]
     Dosage: 40 mg, qd
     Route: 048
  13. SELBEX [Concomitant]
     Dosage: 100 mg, qd
     Route: 048
  14. LOXONIN [Concomitant]
     Dosage: 60 mg, prn
     Route: 048
     Dates: start: 20120313, end: 20120531
  15. LAC-B [Concomitant]
     Dosage: 3 g, qd
     Route: 048
     Dates: start: 20120316
  16. URINORM [Concomitant]
     Dosage: 50 mg, qd
     Route: 048
     Dates: start: 20120316
  17. URALYT                             /06402701/ [Concomitant]
     Dosage: 3 DF, qd
     Route: 048
     Dates: start: 20120316
  18. PRIMPERAN [Concomitant]
     Dosage: 3 DF, qd
     Route: 048
     Dates: start: 20120317, end: 20120502
  19. LOPEMIN [Concomitant]
     Dosage: 1 mg, prn
     Route: 048
     Dates: start: 20120319
  20. AZUNOL #1 [Concomitant]
     Dosage: UNK UNK, prn
     Route: 061
     Dates: start: 20120319
  21. METALCAPTASE [Concomitant]
     Route: 048

REACTIONS (3)
  - White blood cell count decreased [Recovered/Resolved]
  - Haemoglobin decreased [Recovered/Resolved]
  - Diarrhoea [Recovered/Resolved]
